FAERS Safety Report 24041494 (Version 1)
Quarter: 2024Q3

REPORT INFORMATION
  Report Type: Report from Study
  Country: US (occurrence: None)
  Receive Date: 20240702
  Receipt Date: 20240702
  Transmission Date: 20241016
  Serious: Yes (Hospitalization)
  Sender: ASTRAZENECA
  Company Number: 2024A146189

PATIENT
  Sex: Female
  Weight: 83.9 kg

DRUGS (1)
  1. LYNPARZA [Suspect]
     Active Substance: OLAPARIB
     Indication: Ovarian cancer
     Dosage: 150MG 2 TABS TWICE DAILY
     Route: 048
     Dates: start: 20240304

REACTIONS (3)
  - Fall [Unknown]
  - Hip fracture [Unknown]
  - Product dose omission issue [Unknown]
